FAERS Safety Report 9763413 (Version 1)
Quarter: 2013Q4

REPORT INFORMATION
  Report Type: Spontaneous
  Country: US (occurrence: US)
  Receive Date: 20131216
  Receipt Date: 20131216
  Transmission Date: 20140711
  Serious: No
  Sender: FDA-Public Use
  Company Number: US-BIOGENIDEC-2013BI108988

PATIENT
  Age: 63 Year
  Sex: Female
  Weight: 72 kg

DRUGS (8)
  1. TECFIDERA [Suspect]
     Indication: PRODUCT USED FOR UNKNOWN INDICATION
     Route: 048
  2. TECFIDERA [Suspect]
     Indication: PRODUCT USED FOR UNKNOWN INDICATION
     Route: 048
  3. CENTRUM [Concomitant]
  4. OSCAL [Concomitant]
  5. D3 [Concomitant]
  6. RAMIPRIL [Concomitant]
  7. FISH OIL [Concomitant]
  8. LOVASTATIN [Concomitant]

REACTIONS (2)
  - Somnolence [Unknown]
  - Flushing [Unknown]
